FAERS Safety Report 9186066 (Version 2)
Quarter: 2013Q2

REPORT INFORMATION
  Report Type: Spontaneous
  Country: US (occurrence: US)
  Receive Date: 20130325
  Receipt Date: 20130411
  Transmission Date: 20140414
  Serious: Yes (Disabling)
  Sender: FDA-Public Use
  Company Number: US-MERCK-1303USA009954

PATIENT
  Sex: Male

DRUGS (7)
  1. JANUMET [Suspect]
     Indication: TYPE 2 DIABETES MELLITUS
     Dosage: 1000/50,UNK
     Route: 048
     Dates: start: 201212
  2. OMEPRAZOLE [Concomitant]
  3. PROPRANOLOL HYDROCHLORIDE [Concomitant]
  4. ATORVASTATIN [Concomitant]
  5. PROSTATE 9 COMPLEX [Concomitant]
  6. DIOVAN [Concomitant]
  7. VITAMIN D (UNSPECIFIED) [Concomitant]

REACTIONS (4)
  - Exostosis [Recovering/Resolving]
  - Blood glucose increased [Unknown]
  - Inadequate diet [Unknown]
  - Weight increased [Unknown]
